FAERS Safety Report 17746770 (Version 1)
Quarter: 2020Q2

REPORT INFORMATION
  Report Type: Spontaneous
  Country: US (occurrence: US)
  Receive Date: 20200505
  Receipt Date: 20200505
  Transmission Date: 20200714
  Serious: No
  Sender: FDA-Public Use
  Company Number: US-ROCHE-2404257

PATIENT
  Sex: Male

DRUGS (10)
  1. ISOSORBIDE. [Concomitant]
     Active Substance: ISOSORBIDE
  2. AZITHROMYCIN ANHYDROUS. [Concomitant]
     Active Substance: AZITHROMYCIN ANHYDROUS
  3. SPIRIVA RESPIMAT [Concomitant]
     Active Substance: TIOTROPIUM BROMIDE
  4. RANITIDINE. [Concomitant]
     Active Substance: RANITIDINE
  5. NITROSTAT [Concomitant]
     Active Substance: NITROGLYCERIN
  6. ALBUTEROL [SALBUTAMOL] [Concomitant]
     Active Substance: ALBUTEROL
  7. ESBRIET [Suspect]
     Active Substance: PIRFENIDONE
     Indication: BRONCHIOLITIS
     Route: 048
     Dates: start: 20160422
  8. ASPIRIN [ACETYLSALICYLIC ACID] [Concomitant]
     Active Substance: ASPIRIN
  9. RIFAMPIN. [Concomitant]
     Active Substance: RIFAMPIN
  10. ETAMBUTOL [ETHAMBUTOL] [Concomitant]

REACTIONS (1)
  - Dyspnoea [Unknown]
